FAERS Safety Report 15955990 (Version 1)
Quarter: 2019Q1

REPORT INFORMATION
  Report Type: Spontaneous
  Country: US (occurrence: US)
  Receive Date: 20190213
  Receipt Date: 20190213
  Transmission Date: 20190417
  Serious: No
  Sender: FDA-Public Use
  Company Number: US-MYLANLABS-2019M1008443

PATIENT

DRUGS (1)
  1. LEVOTHYROXINE SODIUM TABLETS, USP [Suspect]
     Active Substance: LEVOTHYROXINE SODIUM
     Indication: PRODUCT USED FOR UNKNOWN INDICATION
     Dosage: 1
     Route: 048
     Dates: start: 20190124

REACTIONS (4)
  - Wrong technique in product usage process [Unknown]
  - Intentional underdose [Unknown]
  - Accidental exposure to product [Unknown]
  - Product quality issue [Unknown]

NARRATIVE: CASE EVENT DATE: 20190124
